FAERS Safety Report 15691042 (Version 2)
Quarter: 2019Q2

REPORT INFORMATION
  Report Type: Report from Study
  Country: US (occurrence: US)
  Receive Date: 20181205
  Receipt Date: 20190529
  Transmission Date: 20190711
  Serious: No
  Sender: FDA-Public Use
  Company Number: PHEH2018US050990

PATIENT
  Sex: Female

DRUGS (1)
  1. GILENYA [Suspect]
     Active Substance: FINGOLIMOD HYDROCHLORIDE
     Indication: PATERNAL EXPOSURE DURING PREGNANCY
     Dosage: PATERNAL DOSE: 0.5 MG QD
     Route: 050

REACTIONS (1)
  - Exposure via partner [Unknown]
